FAERS Safety Report 16640603 (Version 1)
Quarter: 2019Q3

REPORT INFORMATION
  Report Type: Spontaneous
  Country: US (occurrence: US)
  Receive Date: 20190729
  Receipt Date: 20190729
  Transmission Date: 20191004
  Serious: No
  Sender: FDA-Public Use
  Company Number: US-STRIDES ARCOLAB LIMITED-2018SP004957

PATIENT

DRUGS (4)
  1. MYCOPHENOLATE MOFETIL. [Suspect]
     Active Substance: MYCOPHENOLATE MOFETIL
     Indication: LUNG TRANSPLANT
     Dosage: UNK
     Route: 065
  2. PREDNISONE. [Concomitant]
     Active Substance: PREDNISONE
     Indication: LUNG TRANSPLANT
     Dosage: UNK
     Route: 065
  3. CYCLOSPORINE. [Concomitant]
     Active Substance: CYCLOSPORINE
     Indication: LUNG TRANSPLANT
     Dosage: UNK
     Route: 065
  4. BASILIXIMAB [Concomitant]
     Active Substance: BASILIXIMAB
     Indication: LUNG TRANSPLANT
     Dosage: UNK
     Route: 065

REACTIONS (1)
  - Off label use [Unknown]
